FAERS Safety Report 12153871 (Version 5)
Quarter: 2019Q2

REPORT INFORMATION
  Report Type: Spontaneous
  Country: JP (occurrence: JP)
  Receive Date: 20160307
  Receipt Date: 20190423
  Transmission Date: 20190711
  Serious: Yes (Hospitalization, Other)
  Sender: FDA-Public Use
  Company Number: JP-AMGEN-JPNSP2016027808

PATIENT
  Age: 77 Year
  Sex: Female
  Weight: 45 kg

DRUGS (7)
  1. ALOXI [Concomitant]
     Active Substance: PALONOSETRON HYDROCHLORIDE
     Indication: FALLOPIAN TUBE CANCER
     Dosage: 0.75 MILLIGRAM, QD
     Route: 042
     Dates: start: 20150709, end: 20150709
  2. POLARAMINE [Concomitant]
     Active Substance: DEXCHLORPHENIRAMINE MALEATE
     Indication: FALLOPIAN TUBE CANCER
     Dosage: 5 MILLIGRAM, QD
     Route: 042
     Dates: start: 20150709, end: 20150709
  3. PACLITAXEL. [Concomitant]
     Active Substance: PACLITAXEL
     Indication: FALLOPIAN TUBE CANCER
     Dosage: 240 MILLIGRAM, QD
     Route: 042
     Dates: start: 20150709, end: 20150709
  4. DEXART [Concomitant]
     Active Substance: DEXAMETHASONE SODIUM PHOSPHATE
     Indication: FALLOPIAN TUBE CANCER
     Dosage: 16.5 MILLIGRAM, QD
     Route: 042
     Dates: start: 20150709, end: 20150709
  5. ZANTAC [Concomitant]
     Active Substance: RANITIDINE HYDROCHLORIDE
     Indication: FALLOPIAN TUBE CANCER
     Dosage: 50 MILLIGRAM, QD
     Route: 042
     Dates: start: 20150709, end: 20150709
  6. CARBOPLATIN. [Concomitant]
     Active Substance: CARBOPLATIN
     Indication: FALLOPIAN TUBE CANCER
     Dosage: 450 MILLIGRAM, QD
     Route: 042
     Dates: start: 20150709, end: 20150709
  7. GRAN [Suspect]
     Active Substance: FILGRASTIM
     Indication: NEUTROPENIA
     Dosage: 75 MICROGRAM, QD
     Route: 058
     Dates: start: 20150716, end: 20150721

REACTIONS (1)
  - Aortitis [Recovered/Resolved]

NARRATIVE: CASE EVENT DATE: 20150723
